FAERS Safety Report 8225244-2 (Version None)
Quarter: 2012Q1

REPORT INFORMATION
  Report Type: 
  Country: None (occurrence: None)
  Receive Date: 20120321
  Receipt Date: 20120308
  Transmission Date: 20120608
  Serious: Yes (Other)
  Sender: FDA-Public Use
  Company Number: FR-ACTELION-A-CH2010-40291

PATIENT
  Sex: Male
  Weight: 25 kg

DRUGS (7)
  1. ZAVESCA [Suspect]
     Dosage: 100 MG, QD
     Route: 048
     Dates: start: 20100201
  2. ANAFRANIL [Concomitant]
  3. ZAVESCA [Suspect]
     Dosage: 200 MG, QD
     Route: 048
  4. ZAVESCA [Suspect]
     Dosage: 100 MG, QD
     Route: 048
  5. ZAVESCA [Suspect]
     Dosage: 300 MG, QD
     Route: 048
  6. ZAVESCA [Suspect]
     Dosage: 200 MG, QD
     Route: 048
  7. ZAVESCA [Suspect]
     Indication: NIEMANN-PICK DISEASE
     Dosage: 300 MG, QD
     Route: 048

REACTIONS (9)
  - WEIGHT DECREASED [None]
  - DECREASED APPETITE [None]
  - GASTROINTESTINAL DISORDER [None]
  - FACTOR X DEFICIENCY [None]
  - ABDOMINAL PAIN [None]
  - EPISTAXIS [None]
  - GENERAL PHYSICAL HEALTH DETERIORATION [None]
  - DIARRHOEA [None]
  - ASTHENIA [None]
